FAERS Safety Report 8234809-3 (Version None)
Quarter: 2012Q1

REPORT INFORMATION
  Report Type: 
  Country: None (occurrence: None)
  Receive Date: 20120322
  Receipt Date: 20120314
  Transmission Date: 20120608
  Serious: Yes (Other)
  Sender: FDA-Public Use
  Company Number: 2012-1135

PATIENT
  Age: 27 Year
  Sex: Female
  Weight: 40 kg

DRUGS (2)
  1. DYSPORT [Suspect]
     Indication: MUSCLE SPASTICITY
     Dosage: 930 UNITS (930 UNITS, SINGLE CYCLE), INTRAMUSCULAR
     Route: 030
     Dates: start: 20120208, end: 20120208
  2. BACLOFEN [Concomitant]

REACTIONS (3)
  - HEADACHE [None]
  - SOMNOLENCE [None]
  - RESPIRATORY FAILURE [None]
